FAERS Safety Report 8156074-8 (Version None)
Quarter: 2012Q1

REPORT INFORMATION
  Report Type: 
  Country: None (occurrence: None)
  Receive Date: 20120222
  Receipt Date: 20120131
  Transmission Date: 20120608
  Serious: No
  Sender: FDA-Public Use
  Company Number: US-ROXANE LABORATORIES, INC.-2012-RO-00587RO

PATIENT
  Sex: Male

DRUGS (2)
  1. PREDNISONE TAB [Suspect]
  2. CELEBREX [Concomitant]

REACTIONS (1)
  - IMMUNOSUPPRESSION [None]
